FAERS Safety Report 9841545 (Version 3)
Quarter: 2014Q1

REPORT INFORMATION
  Report Type: Spontaneous
  Country: GB (occurrence: GB)
  Receive Date: 20140124
  Receipt Date: 20140304
  Transmission Date: 20141002
  Serious: Yes (Other)
  Sender: FDA-Public Use
  Company Number: GB-PFIZER INC-2014018144

PATIENT
  Age: 26 Year
  Sex: Female

DRUGS (2)
  1. DOXYCYCLINE MONOHYDRATE [Suspect]
     Indication: LOWER RESPIRATORY TRACT INFECTION
  2. ZAPONEX [Suspect]
     Dosage: UNK
     Route: 048
     Dates: start: 20131115

REACTIONS (2)
  - Lower respiratory tract infection [Unknown]
  - White blood cell count increased [Unknown]
